FAERS Safety Report 19456919 (Version 1)
Quarter: 2021Q2

REPORT INFORMATION
  Report Type: Spontaneous
  Country: US (occurrence: US)
  Receive Date: 20210624
  Receipt Date: 20210624
  Transmission Date: 20210717
  Serious: Yes (Other)
  Sender: FDA-Public Use
  Company Number: US-STRIDES ARCOLAB LIMITED-2020SP012893

PATIENT
  Sex: Female

DRUGS (4)
  1. HYDRALAZINE HCL [Suspect]
     Active Substance: HYDRALAZINE HYDROCHLORIDE
     Indication: HYPERTENSION
     Dosage: UNK
     Route: 065
  2. AMITRIPTYLINE [Suspect]
     Active Substance: AMITRIPTYLINE
     Indication: ABDOMINAL MIGRAINE
     Dosage: UNK
     Route: 065
  3. LISINOPRIL. [Suspect]
     Active Substance: LISINOPRIL
     Indication: HYPERTENSION
     Dosage: UNK
     Route: 065
  4. ONDANSETRON [Concomitant]
     Active Substance: ONDANSETRON
     Indication: NAUSEA
     Dosage: UNK
     Route: 065

REACTIONS (9)
  - Arthritis [Recovered/Resolved]
  - Synovitis [Unknown]
  - Orthostatic hypotension [Unknown]
  - Drug ineffective for unapproved indication [Unknown]
  - Systemic lupus erythematosus [Unknown]
  - Anaemia [Recovered/Resolved]
  - Mouth ulceration [Recovered/Resolved]
  - Tenderness [Unknown]
  - Leukopenia [Recovered/Resolved]
